FAERS Safety Report 25025627 (Version 1)
Quarter: 2025Q1

REPORT INFORMATION
  Report Type: Spontaneous
  Country: GB (occurrence: GB)
  Receive Date: 20250228
  Receipt Date: 20250228
  Transmission Date: 20250408
  Serious: Yes (Other)
  Sender: CELLTRION
  Company Number: GB-CELLTRION INC.-2024GB025700

PATIENT

DRUGS (2)
  1. YUFLYMA [Suspect]
     Active Substance: ADALIMUMAB-AATY
     Indication: Rheumatoid arthritis
     Dosage: 40 MG, FORTNIGHTLY
     Route: 058
     Dates: start: 20240906
  2. YUFLYMA [Suspect]
     Active Substance: ADALIMUMAB-AATY
     Dosage: 40 MG, Q2WEEKS
     Route: 058
     Dates: start: 20240920

REACTIONS (3)
  - Rheumatoid arthritis [Unknown]
  - Joint swelling [Not Recovered/Not Resolved]
  - Arthralgia [Not Recovered/Not Resolved]
